FAERS Safety Report 8434890-2 (Version None)
Quarter: 2012Q2

REPORT INFORMATION
  Report Type: 
  Country: None (occurrence: None)
  Receive Date: 20120608
  Receipt Date: 20120530
  Transmission Date: 20120825
  Serious: Yes (Hospitalization, Other)
  Sender: FDA-Public Use
  Company Number: FK201201504

PATIENT
  Age: 21 Year
  Sex: Male

DRUGS (2)
  1. MOXIFLOXACIN HCL [Suspect]
     Indication: PYREXIA
     Dosage: 400 MG, 1 IN 24 HR, ORAL
     Route: 048
  2. CLINDAMYCIN [Suspect]
     Indication: PYREXIA
     Dosage: 900 MG, 1 IN 8 MIN, INTRAVENOUS (NOT OTHERWISE SPECIFIED)
     Route: 042

REACTIONS (13)
  - CEREBRAL THROMBOSIS [None]
  - PYREXIA [None]
  - NAUSEA [None]
  - ABDOMINAL PAIN [None]
  - CANDIDIASIS [None]
  - HERPES ZOSTER [None]
  - METHAEMOGLOBINAEMIA [None]
  - TOXICITY TO VARIOUS AGENTS [None]
  - BACTERIAL SEPSIS [None]
  - RASH [None]
  - PANCYTOPENIA [None]
  - BRAIN ABSCESS [None]
  - DRUG INTOLERANCE [None]
